FAERS Safety Report 18230863 (Version 3)
Quarter: 2020Q4

REPORT INFORMATION
  Report Type: Spontaneous
  Country: US (occurrence: US)
  Receive Date: 20200904
  Receipt Date: 20201014
  Transmission Date: 20210113
  Serious: Yes (Other)
  Sender: FDA-Public Use
  Company Number: US-BRISTOL-MYERS SQUIBB COMPANY-BMS-2020-068948

PATIENT
  Sex: Female
  Weight: 68.03 kg

DRUGS (8)
  1. WARFARIN SODIUM. [Suspect]
     Active Substance: WARFARIN SODIUM
     Indication: PULMONARY EMBOLISM
  2. SILDENAFIL CITRATE. [Suspect]
     Active Substance: SILDENAFIL CITRATE
     Indication: PULMONARY ARTERIAL HYPERTENSION
     Dosage: UNK
     Route: 065
  3. REMODULIN [Suspect]
     Active Substance: TREPROSTINIL
     Dosage: 0.023 MICROGRAM/KILOGRAM, CONTINUING
     Route: 041
     Dates: start: 2020
  4. REMODULIN [Suspect]
     Active Substance: TREPROSTINIL
     Dosage: 0.017 MICROGRAM/KILOGRAM
     Route: 041
     Dates: start: 2020
  5. REMODULIN [Suspect]
     Active Substance: TREPROSTINIL
     Dosage: 0.027 MICROGRAM/KILOGRAM
     Route: 041
     Dates: start: 2020
  6. WARFARIN SODIUM. [Suspect]
     Active Substance: WARFARIN SODIUM
     Indication: DEEP VEIN THROMBOSIS
     Dosage: UNK
     Route: 065
  7. REMODULIN [Suspect]
     Active Substance: TREPROSTINIL
     Indication: PULMONARY ARTERIAL HYPERTENSION
     Dosage: 2.5 MILLIGRAM PER MILLILITRE
     Route: 041
     Dates: start: 20200716
  8. REMODULIN [Suspect]
     Active Substance: TREPROSTINIL
     Dosage: 0.03 MICROGRAM/KILOGRAM
     Route: 042
     Dates: start: 2020

REACTIONS (12)
  - Pain in extremity [Not Recovered/Not Resolved]
  - Blood potassium decreased [Recovered/Resolved]
  - Headache [Not Recovered/Not Resolved]
  - Catheter site pain [Unknown]
  - Vomiting [Not Recovered/Not Resolved]
  - Pain in jaw [Not Recovered/Not Resolved]
  - Vaginal haemorrhage [Not Recovered/Not Resolved]
  - Diarrhoea [Not Recovered/Not Resolved]
  - Dyspepsia [Not Recovered/Not Resolved]
  - Weight decreased [Not Recovered/Not Resolved]
  - Haematoma [Recovered/Resolved]
  - Catheter site swelling [Unknown]

NARRATIVE: CASE EVENT DATE: 2020
